FAERS Safety Report 14994478 (Version 1)
Quarter: 2018Q2

REPORT INFORMATION
  Report Type: Spontaneous
  Country: US (occurrence: US)
  Receive Date: 20180521
  Receipt Date: 20180521
  Transmission Date: 20180711
  Serious: Yes (Other)
  Sender: FDA-Public Use
  Company Number: None

PATIENT
  Age: 43 Year
  Sex: Male
  Weight: 135 kg

DRUGS (5)
  1. VITAMIN C [Concomitant]
     Active Substance: ASCORBIC ACID
  2. KEPPRA [Suspect]
     Active Substance: LEVETIRACETAM
     Indication: EPILEPSY
     Route: 048
     Dates: start: 20170501, end: 20180515
  3. BETAMETHASONE. [Concomitant]
     Active Substance: BETAMETHASONE
  4. VITAMIN D [Concomitant]
     Active Substance: CHOLECALCIFEROL
  5. DEPAKOTE [Concomitant]
     Active Substance: DIVALPROEX SODIUM

REACTIONS (5)
  - Vomiting [None]
  - Dysstasia [None]
  - Gait disturbance [None]
  - Dizziness [None]
  - Diarrhoea [None]

NARRATIVE: CASE EVENT DATE: 20180507
